FAERS Safety Report 7553350-4 (Version None)
Quarter: 2011Q2

REPORT INFORMATION
  Report Type: 
  Country: None (occurrence: None)
  Receive Date: 20110617
  Receipt Date: 20110610
  Transmission Date: 20111010
  Serious: Yes (Disabling)
  Sender: FDA-Public Use
  Company Number: FR-BRISTOL-MYERS SQUIBB COMPANY-15829690

PATIENT
  Age: 81 Year
  Sex: Female

DRUGS (4)
  1. ENALAPRIL MALEATE [Concomitant]
  2. ONGLYZA [Suspect]
     Indication: TYPE 2 DIABETES MELLITUS
     Route: 048
     Dates: start: 20110201, end: 20110501
  3. KARDEGIC [Concomitant]
  4. METFORMIN HCL [Concomitant]

REACTIONS (2)
  - OEDEMA PERIPHERAL [None]
  - PAIN [None]
